FAERS Safety Report 21980956 (Version 1)
Quarter: 2023Q1

REPORT INFORMATION
  Report Type: Report from Study
  Country: CA (occurrence: CA)
  Receive Date: 20230211
  Receipt Date: 20230211
  Transmission Date: 20230418
  Serious: Yes (Death, Other)
  Sender: FDA-Public Use
  Company Number: CA-002147023-NVSC2022CA051299

PATIENT
  Age: 47 Year
  Sex: Male

DRUGS (2)
  1. VOTRIENT [Suspect]
     Active Substance: PAZOPANIB HYDROCHLORIDE
     Indication: Soft tissue sarcoma
     Dosage: 4 DOSAGE FORM, QD (800 MG, DAILY)
     Route: 048
     Dates: start: 20211026
  2. VOTRIENT [Suspect]
     Active Substance: PAZOPANIB HYDROCHLORIDE
     Dosage: 2 DOSAGE FORM, QD (400 MG, DAILY)
     Route: 048
     Dates: end: 20221024

REACTIONS (5)
  - Death [Fatal]
  - Soft tissue sarcoma [Unknown]
  - Malignant neoplasm progression [Unknown]
  - Incorrect dose administered [Unknown]
  - Drug intolerance [Unknown]

NARRATIVE: CASE EVENT DATE: 20230123
